FAERS Safety Report 6399912-1 (Version None)
Quarter: 2009Q4

REPORT INFORMATION
  Report Type: 
  Country: None (occurrence: None)
  Receive Date: 20091014
  Receipt Date: 20091002
  Transmission Date: 20100525
  Serious: Yes (Life-Threatening, Other)
  Sender: FDA-Public Use
  Company Number: GB-PFIZER INC-2005142587

PATIENT
  Age: 75 Year

DRUGS (5)
  1. ZYVOX [Suspect]
     Indication: INFECTION
     Dosage: 600 MG, 2X/DAY
     Route: 042
     Dates: start: 20050916, end: 20050922
  2. LANSOPRAZOLE [Concomitant]
     Dosage: 15 MG, 1X/DAY
  3. CASPOFUNGIN [Concomitant]
     Dosage: 50 MG, 1X/DAY AT NIGHT
  4. MEROPENEM [Concomitant]
     Dosage: 1 G, 2X/DAY
  5. VANCOMYCIN [Concomitant]
     Dosage: VARIABLE DOSE, UNK
     Route: 042
     Dates: start: 20050830, end: 20050914

REACTIONS (1)
  - TUBULOINTERSTITIAL NEPHRITIS [None]
